FAERS Safety Report 5753678-4 (Version None)
Quarter: 2008Q2

REPORT INFORMATION
  Report Type: 
  Country: None (occurrence: None)
  Receive Date: 20080530
  Receipt Date: 20080522
  Transmission Date: 20081010
  Serious: Yes (Other)
  Sender: FDA-Public Use
  Company Number: US-JNJFOC-20080505486

PATIENT
  Age: 44 Year
  Sex: Female
  Weight: 63.05 kg

DRUGS (2)
  1. ELMIRON [Suspect]
     Indication: CYSTITIS INTERSTITIAL
     Route: 048
  2. FOSAMAX [Concomitant]
     Indication: OSTEOPENIA

REACTIONS (2)
  - ANAEMIA [None]
  - PLATELET COUNT DECREASED [None]
